FAERS Safety Report 10341725 (Version 5)
Quarter: 2014Q3

REPORT INFORMATION
  Report Type: Spontaneous
  Country: US (occurrence: US)
  Receive Date: 20140725
  Receipt Date: 20140926
  Transmission Date: 20150326
  Serious: Yes (Death, Hospitalization, Other)
  Sender: FDA-Public Use
  Company Number: 2014SP003957

PATIENT
  Age: 71 Year
  Sex: Female
  Weight: 93.8 kg

DRUGS (12)
  1. MAGNESIUM SULPHATE /01097001/ [Concomitant]
     Active Substance: MAGNESIUM SULFATE
     Indication: PROPHYLAXIS
     Dates: start: 20140624, end: 20140630
  2. FENTANYL CITRATE. [Concomitant]
     Active Substance: FENTANYL CITRATE
     Indication: SURGERY
     Dates: start: 20140630, end: 20140630
  3. DAUNORUBICIN [Suspect]
     Active Substance: DAUNORUBICIN
     Indication: ACUTE MYELOID LEUKAEMIA
     Route: 040
     Dates: start: 20140616, end: 20140618
  4. FUROSEMIDE /00032602/ [Concomitant]
     Active Substance: FUROSEMIDE
     Indication: OEDEMA
     Dates: start: 20140614, end: 20140624
  5. PROCHLORPERAZINE. [Concomitant]
     Active Substance: PROCHLORPERAZINE
     Indication: PREMEDICATION
     Dates: start: 20140617, end: 20140623
  6. MAGNESIUM OXIDE. [Concomitant]
     Active Substance: MAGNESIUM OXIDE
     Indication: PROPHYLAXIS
     Dates: start: 20140617, end: 20140627
  7. LORAZEPAM. [Concomitant]
     Active Substance: LORAZEPAM
     Indication: SURGERY
     Dates: start: 20140630, end: 20140630
  8. VITAMIN K [Concomitant]
     Active Substance: PHYTONADIONE
     Indication: PROPHYLAXIS
     Dates: start: 20140617, end: 20140619
  9. POTASSIUM CHLORIDE. [Concomitant]
     Active Substance: POTASSIUM CHLORIDE
     Indication: PROPHYLAXIS
     Dates: start: 20140620, end: 20140630
  10. LOPERAMIDE HYDROCHLORIDE. [Concomitant]
     Active Substance: LOPERAMIDE HYDROCHLORIDE
     Indication: DIARRHOEA
     Dates: start: 20140618
  11. CYTARABINE. [Suspect]
     Active Substance: CYTARABINE
     Indication: ACUTE MYELOID LEUKAEMIA
     Route: 042
     Dates: start: 20140616, end: 20140622
  12. LEVOFLOXACIN [Concomitant]
     Active Substance: LEVOFLOXACIN
     Indication: INFECTION PROPHYLAXIS
     Dates: start: 20140612

REACTIONS (6)
  - Lung consolidation [Unknown]
  - Acute myeloid leukaemia [Fatal]
  - Pneumonia [Not Recovered/Not Resolved]
  - Pneumonitis [Unknown]
  - Pulmonary oedema [Unknown]
  - Disease progression [Fatal]

NARRATIVE: CASE EVENT DATE: 20140701
